FAERS Safety Report 8932846 (Version 1)
Quarter: 2012Q4

REPORT INFORMATION
  Report Type: Spontaneous
  Country: US (occurrence: None)
  Receive Date: 20121127
  Receipt Date: 20121127
  Transmission Date: 20130627
  Serious: Yes (Death)
  Sender: FDA-Public Use
  Company Number: None

PATIENT
  Age: 60 Year
  Sex: Male
  Weight: 118 kg

DRUGS (19)
  1. 5-FU [Suspect]
     Indication: PANCREATIC ADENOCARCINOMA
     Dates: start: 20121008
  2. IRINOTECAN [Suspect]
     Indication: PANCREATIC ADENOCARCINOMA
     Dates: start: 20121008
  3. OXALIPLATIN [Suspect]
     Indication: PANCREATIC ADENOCARCINOMA
     Dates: start: 20121008
  4. LEUCOVORIN [Suspect]
     Indication: PANCREATIC ADENOCARCINOMA
     Dates: start: 20121008
  5. CIPROFLOXACIN [Concomitant]
  6. ENOXAPARIN [Concomitant]
  7. FILGRASTIM [Concomitant]
  8. 5-FLUOROURACIL [Concomitant]
  9. NORCO [Concomitant]
  10. INSULIN ASPART [Concomitant]
  11. EMLA CREAM [Concomitant]
  12. CREON [Concomitant]
  13. PRILOSEC [Concomitant]
  14. ZOFRAN [Concomitant]
  15. PROCHLORPERAZINE [Concomitant]
  16. QUINAPRIL [Concomitant]
  17. ZOCOR [Concomitant]
  18. ACTIGALL [Concomitant]
  19. WARFARIN [Concomitant]

REACTIONS (11)
  - Abdominal discomfort [None]
  - Abdominal pain [None]
  - Asthenia [None]
  - Fall [None]
  - Pulse absent [None]
  - Cardiac arrest [None]
  - Hypotension [None]
  - Hypoglycaemia [None]
  - Hyperkalaemia [None]
  - Acidosis [None]
  - Blood pressure increased [None]
